FAERS Safety Report 23386258 (Version 6)
Quarter: 2024Q3

REPORT INFORMATION
  Report Type: Report from Study
  Country: CA (occurrence: CA)
  Receive Date: 20240110
  Receipt Date: 20240724
  Transmission Date: 20241016
  Serious: Yes (Other)
  Sender: TAKEDA
  Company Number: CA-TAKEDA-2019TUS038165

PATIENT
  Age: 43 Year
  Sex: Female

DRUGS (3)
  1. VEDOLIZUMAB [Suspect]
     Active Substance: VEDOLIZUMAB
     Indication: Crohn^s disease
     Dosage: 300 MILLIGRAM
     Route: 042
     Dates: start: 20190527
  2. VEDOLIZUMAB [Suspect]
     Active Substance: VEDOLIZUMAB
     Indication: Crohn^s disease
     Dosage: 108 MILLIGRAM, Q2WEEKS
     Route: 058
     Dates: start: 20221209
  3. VEDOLIZUMAB [Suspect]
     Active Substance: VEDOLIZUMAB
     Dosage: 108 MILLIGRAM, Q2WEEKS
     Route: 058

REACTIONS (6)
  - Influenza [Not Recovered/Not Resolved]
  - Illness [Unknown]
  - Malaise [Unknown]
  - Chills [Not Recovered/Not Resolved]
  - Nasopharyngitis [Unknown]
  - Pyrexia [Not Recovered/Not Resolved]

NARRATIVE: CASE EVENT DATE: 20190527
